FAERS Safety Report 4998076-6 (Version None)
Quarter: 2006Q2

REPORT INFORMATION
  Report Type: 
  Country: None (occurrence: None)
  Receive Date: 20060510
  Receipt Date: 20051215
  Transmission Date: 20061013
  Serious: Yes (Hospitalization)
  Sender: FDA-Public Use
  Company Number: US-MERCK-0512USA02463

PATIENT
  Age: 46 Year
  Sex: Female
  Weight: 211 kg

DRUGS (1)
  1. VIOXX [Suspect]
     Indication: ARTHROPATHY
     Route: 048
     Dates: start: 20030410, end: 20040812

REACTIONS (3)
  - ASTHMA [None]
  - PSEUDOCYST [None]
  - PULMONARY EMBOLISM [None]
